FAERS Safety Report 6586927-3 (Version None)
Quarter: 2010Q1

REPORT INFORMATION
  Report Type: 
  Country: None (occurrence: None)
  Receive Date: 20100217
  Receipt Date: 20090427
  Transmission Date: 20100710
  Serious: No
  Sender: FDA-Public Use
  Company Number: US-ALLERGAN-0903217US

PATIENT
  Age: 38 Year
  Sex: Female
  Weight: 56.689 kg

DRUGS (1)
  1. BOTOX COSMETIC [Suspect]
     Indication: SKIN WRINKLING
     Dosage: 40 UNITS, SINGLE
     Route: 030
     Dates: start: 20090212, end: 20090212

REACTIONS (5)
  - ASTHENIA [None]
  - ASTHENOPIA [None]
  - DIZZINESS [None]
  - FATIGUE [None]
  - STRABISMUS [None]
